FAERS Safety Report 9994555 (Version 3)
Quarter: 2014Q2

REPORT INFORMATION
  Report Type: Spontaneous
  Country: BR (occurrence: BR)
  Receive Date: 20140311
  Receipt Date: 20140620
  Transmission Date: 20141212
  Serious: Yes (Death, Other)
  Sender: FDA-Public Use
  Company Number: BR-PFIZER INC-2012039583

PATIENT
  Age: 69 Year
  Sex: Male
  Weight: 68 kg

DRUGS (4)
  1. SUTENT [Suspect]
     Indication: RENAL CELL CARCINOMA STAGE IV
     Dosage: 50 MG, 1X/DAY (ONE TABLET, ONCE A DAY)
     Route: 048
     Dates: start: 20120110
  2. CAPTOPRIL [Concomitant]
     Indication: HYPERTENSION
     Dosage: 50 MG, 1X/DAY (ONE TABLET, ONCE A DAY)
  3. AZUKON [Concomitant]
     Indication: DIABETES MELLITUS
  4. METFORMIN [Concomitant]

REACTIONS (4)
  - Death [Fatal]
  - Blood pressure increased [Recovered/Resolved]
  - Cardiac failure [Unknown]
  - Headache [Unknown]
